FAERS Safety Report 25543558 (Version 2)
Quarter: 2025Q4

REPORT INFORMATION
  Report Type: Report from Study
  Country: AU (occurrence: AU)
  Receive Date: 20250711
  Receipt Date: 20251015
  Transmission Date: 20260117
  Serious: Yes (Other)
  Sender: RANBAXY
  Company Number: AU-SUN PHARMACEUTICAL INDUSTRIES LTD-2025RR-516478

PATIENT
  Age: 44 Year
  Sex: Female

DRUGS (17)
  1. CYCLOSPORINE [Suspect]
     Active Substance: CYCLOSPORINE
     Indication: Ulcer
     Dosage: 3 MILLIGRAM/KILOGRAM, DAILY, DIVIDED INTO 2 DOSES
     Route: 065
  2. CYCLOSPORINE [Suspect]
     Active Substance: CYCLOSPORINE
     Indication: Pyoderma gangrenosum
  3. PREDNISOLONE [Suspect]
     Active Substance: PREDNISOLONE
     Indication: Ulcer
     Dosage: 5?50MG DAILY
     Route: 048
  4. PREDNISOLONE [Suspect]
     Active Substance: PREDNISOLONE
     Indication: Pyoderma gangrenosum
  5. METHYLPREDNISOLONE [Suspect]
     Active Substance: METHYLPREDNISOLONE
     Indication: Ulcer
     Dosage: 500 MILLIGRAM, DAILY
     Route: 042
  6. METHYLPREDNISOLONE [Suspect]
     Active Substance: METHYLPREDNISOLONE
     Indication: Pyoderma gangrenosum
  7. MYCOPHENOLIC ACID [Suspect]
     Active Substance: MYCOPHENOLIC ACID
     Indication: Ulcer
     Dosage: 1.5 MILLIGRAM, BID
     Route: 065
  8. MYCOPHENOLIC ACID [Suspect]
     Active Substance: MYCOPHENOLIC ACID
     Indication: Pyoderma gangrenosum
  9. METHOTREXATE [Suspect]
     Active Substance: METHOTREXATE
     Indication: Ulcer
     Dosage: 10 MILLIGRAM, WEEKLY
     Route: 065
  10. METHOTREXATE [Suspect]
     Active Substance: METHOTREXATE
     Indication: Pyoderma gangrenosum
  11. HUMAN IMMUNOGLOBULIN G [Suspect]
     Active Substance: HUMAN IMMUNOGLOBULIN G
     Indication: Ulcer
     Dosage: 1 G/KG, OVER TWO DAYS, 4-WEEKLY
     Route: 042
  12. HUMAN IMMUNOGLOBULIN G [Suspect]
     Active Substance: HUMAN IMMUNOGLOBULIN G
     Indication: Pyoderma gangrenosum
  13. INFLIXIMAB [Suspect]
     Active Substance: INFLIXIMAB
     Indication: Ulcer
     Dosage: 625 MILLIGRAM, 4-WEEKLY
     Route: 065
  14. USTEKINUMAB [Suspect]
     Active Substance: USTEKINUMAB
     Indication: Ulcer
     Dosage: 45 MILLIGRAM, 6-WEEKLY
     Route: 065
  15. USTEKINUMAB [Suspect]
     Active Substance: USTEKINUMAB
     Indication: Pyoderma gangrenosum
  16. ADALIMUMAB [Suspect]
     Active Substance: ADALIMUMAB
     Indication: Ulcer
     Dosage: 40 MILLIGRAM, WEEKLY
     Route: 065
  17. ADALIMUMAB [Suspect]
     Active Substance: ADALIMUMAB
     Indication: Pyoderma gangrenosum

REACTIONS (2)
  - Disease progression [Unknown]
  - Drug ineffective [Unknown]
